FAERS Safety Report 7083581-1 (Version None)
Quarter: 2010Q4

REPORT INFORMATION
  Report Type: 
  Country: None (occurrence: None)
  Receive Date: 20101104
  Receipt Date: 20101028
  Transmission Date: 20110411
  Serious: Yes (Life-Threatening, Other)
  Sender: FDA-Public Use
  Company Number: CN-ROCHE-737393

PATIENT
  Age: 60 Year

DRUGS (2)
  1. XELODA [Suspect]
     Indication: COLORECTAL CANCER
     Route: 048
  2. XELODA [Suspect]
     Route: 048

REACTIONS (4)
  - BONE MARROW FAILURE [None]
  - CARDIAC FAILURE [None]
  - PERICARDIAL EFFUSION [None]
  - PLEURAL EFFUSION [None]
